FAERS Safety Report 12885134 (Version 1)
Quarter: 2016Q4

REPORT INFORMATION
  Report Type: Spontaneous
  Country: GR (occurrence: GR)
  Receive Date: 20161026
  Receipt Date: 20161026
  Transmission Date: 20170207
  Serious: Yes (Hospitalization, Other)
  Sender: FDA-Public Use
  Company Number: GR-SCIEGEN PHARMACEUTICALS INC-2016SCILIT00061

PATIENT
  Age: 48 Year
  Sex: Female

DRUGS (3)
  1. OLANZAPINE. [Concomitant]
     Active Substance: OLANZAPINE
     Indication: BIPOLAR DISORDER
     Dosage: UNK
     Route: 065
  2. OXCARBAZEPINE. [Concomitant]
     Active Substance: OXCARBAZEPINE
     Indication: BIPOLAR DISORDER
  3. LAMOTRIGINE TABLETS [Suspect]
     Active Substance: LAMOTRIGINE
     Indication: BIPOLAR DISORDER
     Dosage: 200 MG, QD (30 TABLETS)
     Route: 065

REACTIONS (7)
  - Overdose [Unknown]
  - Depressed mood [Unknown]
  - Depression [Unknown]
  - Suicide attempt [Unknown]
  - Blood creatine phosphokinase increased [Recovered/Resolved]
  - Suicide of relative [Unknown]
  - Rhabdomyolysis [Unknown]
